FAERS Safety Report 8525767-2 (Version None)
Quarter: 2012Q3

REPORT INFORMATION
  Report Type: 
  Country: None (occurrence: None)
  Receive Date: 20120720
  Receipt Date: 20120710
  Transmission Date: 20120928
  Serious: Yes (Hospitalization, Disabling, Other)
  Sender: FDA-Public Use
  Company Number: US-009507513-1201USA02899

PATIENT

DRUGS (4)
  1. FOSAMAX [Suspect]
     Indication: OSTEOPOROSIS
     Dosage: 70 MG, QW
     Route: 048
     Dates: start: 20060601, end: 20090729
  2. NEXIUM [Concomitant]
     Route: 048
     Dates: start: 20020301, end: 20061001
  3. FOSAMAX [Suspect]
     Indication: OSTEOPENIA
  4. FOSAMAX PLUS D [Suspect]
     Route: 048
     Dates: start: 20060730

REACTIONS (52)
  - ELBOW OPERATION [None]
  - URGE INCONTINENCE [None]
  - STRESS URINARY INCONTINENCE [None]
  - VITAMIN B12 DEFICIENCY [None]
  - BALANCE DISORDER [None]
  - BLOOD PHOSPHORUS INCREASED [None]
  - OEDEMA PERIPHERAL [None]
  - LOWER LIMB FRACTURE [None]
  - DEVICE FAILURE [None]
  - BODY HEIGHT DECREASED [None]
  - ARTHRITIS [None]
  - UTEROVAGINAL PROLAPSE [None]
  - SEROMA [None]
  - TYPE 2 DIABETES MELLITUS [None]
  - TENDON RUPTURE [None]
  - VITAMIN D DEFICIENCY [None]
  - EXOPHTHALMOS [None]
  - RHEUMATOID ARTHRITIS [None]
  - AREFLEXIA [None]
  - FEMUR FRACTURE [None]
  - FOOT FRACTURE [None]
  - SALPINGO-OOPHORECTOMY [None]
  - HAEMATOCRIT DECREASED [None]
  - CONNECTIVE TISSUE DISORDER [None]
  - RESTLESS LEGS SYNDROME [None]
  - NEUROPATHY PERIPHERAL [None]
  - IRON DEFICIENCY [None]
  - HYPERPARATHYROIDISM SECONDARY [None]
  - LOW TURNOVER OSTEOPATHY [None]
  - HYSTERECTOMY [None]
  - BONE METABOLISM DISORDER [None]
  - HYPERTENSION [None]
  - RESPIRATORY TRACT INFECTION [None]
  - HYPOGAMMAGLOBULINAEMIA [None]
  - PLANTAR FASCIITIS [None]
  - MUSCULOSKELETAL PAIN [None]
  - BACK PAIN [None]
  - CARPAL TUNNEL DECOMPRESSION [None]
  - DEPRESSION [None]
  - ANAL SPHINCTER ATONY [None]
  - ATROPHIC VULVOVAGINITIS [None]
  - HYPERLIPIDAEMIA [None]
  - BRONCHITIS [None]
  - COUGH [None]
  - HAEMOGLOBIN DECREASED [None]
  - PELVIC PROLAPSE [None]
  - GOITRE [None]
  - HIP FRACTURE [None]
  - RECTOCELE [None]
  - SINUSITIS [None]
  - GASTROINTESTINAL DISORDER [None]
  - BURNING SENSATION [None]
